FAERS Safety Report 11079668 (Version 2)
Quarter: 2015Q2

REPORT INFORMATION
  Report Type: Spontaneous
  Country: US (occurrence: US)
  Receive Date: 20150429
  Receipt Date: 20150511
  Transmission Date: 20150821
  Serious: Yes (Other)
  Sender: FDA-Public Use
  Company Number: US-LPDUSPRD-20150247

PATIENT
  Age: 66 Year
  Sex: Male

DRUGS (5)
  1. CYCLOSPORINE INJECTION, USP (866-10) [Suspect]
     Active Substance: CYCLOSPORINE
     Dosage: NOT PROVIDED
     Route: 065
  2. RITUXIMAB [Suspect]
     Active Substance: RITUXIMAB
     Dosage: NOT PROVIDED
     Route: 065
  3. DOXORUBICIN [Suspect]
     Active Substance: DOXORUBICIN
     Dosage: NOT PROVIDED
     Route: 065
  4. DEXAMETHASONE SODIUM PHOSPHATE INJECTION, USP (4901-25) 4 MG/ML [Suspect]
     Active Substance: DEXAMETHASONE SODIUM PHOSPHATE
     Dosage: NOT PROVIDED
     Route: 065
  5. VINCRISTINE [Suspect]
     Active Substance: VINCRISTINE
     Dosage: NOT PROVIDED
     Route: 065

REACTIONS (8)
  - Hodgkin^s disease mixed cellularity stage unspecified [Unknown]
  - Upper respiratory tract infection [Unknown]
  - Opportunistic infection [None]
  - Failure to thrive [None]
  - Herpes zoster [Unknown]
  - Epstein-Barr virus infection [Unknown]
  - Pneumonia [Unknown]
  - Cytomegalovirus chorioretinitis [Unknown]
